FAERS Safety Report 8168466-1 (Version None)
Quarter: 2012Q1

REPORT INFORMATION
  Report Type: 
  Country: None (occurrence: None)
  Receive Date: 20120227
  Receipt Date: 20120216
  Transmission Date: 20120608
  Serious: Yes (Other)
  Sender: FDA-Public Use
  Company Number: US-GILEAD-2012-0051056

PATIENT
  Age: 31 Year
  Sex: Female

DRUGS (5)
  1. EMTRICITABINE AND TENOFOVIR DISOPROXIL FUMARATE [Suspect]
     Indication: HIV INFECTION
     Dosage: 1 DF, QD
     Route: 048
     Dates: start: 20110826
  2. ISENTRESS [Concomitant]
     Dosage: 800 MG, QD
     Route: 048
     Dates: start: 20120105
  3. PREZISTA [Concomitant]
     Dosage: 800 MG, QD
     Route: 048
     Dates: start: 20110826
  4. VIRAMUNE [Concomitant]
     Dosage: 200 MG, QD
     Route: 048
     Dates: start: 20120105
  5. NORVIR [Concomitant]
     Dosage: 100 MG, QD
     Route: 048
     Dates: start: 20110826

REACTIONS (3)
  - CAESAREAN SECTION [None]
  - PREMATURE DELIVERY [None]
  - ULTRASOUND ANTENATAL SCREEN ABNORMAL [None]
